FAERS Safety Report 23179318 (Version 2)
Quarter: 2023Q4

REPORT INFORMATION
  Report Type: Spontaneous
  Country: EG (occurrence: EG)
  Receive Date: 20231113
  Receipt Date: 20231122
  Transmission Date: 20240110
  Serious: Yes (Other)
  Sender: FDA-Public Use
  Company Number: EG-NOVOPROD-1137027

PATIENT
  Age: 42 Year
  Sex: Female
  Weight: 40 kg

DRUGS (8)
  1. NOVORAPID [Suspect]
     Active Substance: INSULIN ASPART
     Dosage: 6 IU, QD AT LUNCH (DUE TO HYPERGLYCEMIA)
     Route: 058
  2. NOVORAPID [Suspect]
     Active Substance: INSULIN ASPART
     Dosage: DECREASED TO 4 OR 5 OR NOT ONGOING (DURING HYPOGLYCEMIA)
     Route: 058
  3. NOVORAPID [Suspect]
     Active Substance: INSULIN ASPART
     Indication: Type 1 diabetes mellitus
     Dosage: UNK
     Route: 058
     Dates: start: 2000
  4. NOVORAPID [Suspect]
     Active Substance: INSULIN ASPART
     Dosage: 5 IU, QD
     Route: 058
  5. NOVORAPID [Suspect]
     Active Substance: INSULIN ASPART
     Dosage: UNK(USING AN EXPIRED PEN)
     Route: 058
     Dates: start: 2018, end: 20231103
  6. KOLEROS [Concomitant]
     Indication: Blood triglycerides abnormal
     Dosage: 1 TABLET AFTER DINNER
  7. CYANOCOBALAMIN [Concomitant]
     Active Substance: CYANOCOBALAMIN
     Dosage: 1 TABLET AFTER DINNER
     Dates: start: 202003
  8. PANTOLOK [Concomitant]
     Indication: Gastrointestinal disorder
     Dosage: 1 TABLET BEFORE BREAKFAST
     Dates: start: 202003

REACTIONS (6)
  - Diabetic coma [Recovered/Resolved]
  - Hyperglycaemia [Not Recovered/Not Resolved]
  - Hypoglycaemia [Unknown]
  - Expired product administered [Recovered/Resolved]
  - Drug ineffective [Unknown]
  - Wrong technique in product usage process [Unknown]

NARRATIVE: CASE EVENT DATE: 20180101
